FAERS Safety Report 20032674 (Version 1)
Quarter: 2021Q4

REPORT INFORMATION
  Report Type: Spontaneous
  Country: GB (occurrence: GB)
  Receive Date: 20211103
  Receipt Date: 20211103
  Transmission Date: 20220304
  Serious: Yes (Disabling)
  Sender: FDA-Public Use
  Company Number: None

PATIENT
  Age: 42 Year
  Sex: Male
  Weight: 85 kg

DRUGS (14)
  1. GABAPENTIN [Suspect]
     Active Substance: GABAPENTIN
     Dosage: 300 MG
     Dates: start: 20211021
  2. ALVERINE CITRATE [Concomitant]
     Active Substance: ALVERINE CITRATE
     Dosage: 3 DOSAGE FORMS DAILY;
     Dates: start: 20210412
  3. AMITRIPTYLINE HYDROCHLORIDE [Concomitant]
     Active Substance: AMITRIPTYLINE HYDROCHLORIDE
     Indication: Pain
     Dosage: TAKE ONE OR TWO AT NIGHT FOR PAIN
     Dates: start: 20211021
  4. BISACODYL [Concomitant]
     Active Substance: BISACODYL
     Dosage: 1-2 AT NIGHT
     Dates: start: 20210412
  5. BUPRENORPHINE [Concomitant]
     Active Substance: BUPRENORPHINE
     Dosage: 1 DOSAGE FORMS
     Dates: start: 20210910
  6. DULOXETINE [Concomitant]
     Active Substance: DULOXETINE
     Dosage: 1 DOSAGE FORMS DAILY;
     Dates: start: 20210412, end: 20210910
  7. BUPRENORPHINE HYDROCHLORIDE [Concomitant]
     Active Substance: BUPRENORPHINE HYDROCHLORIDE
     Dosage: *FOR INFO ONLY, DO NOT DISPENSE, PRESCRIBED BY ...
     Dates: start: 20210702
  8. FOLIC ACID [Concomitant]
     Active Substance: FOLIC ACID
     Dosage: 1 DOSAGE FORMS DAILY;
     Dates: start: 20210908
  9. BECLOMETHASONE\FORMOTEROL [Concomitant]
     Active Substance: BECLOMETHASONE\FORMOTEROL
     Dosage: 4 DOSAGE FORMS DAILY;
     Dates: start: 20210412
  10. POLYETHYLENE GLYCOLS [Concomitant]
     Active Substance: POLYETHYLENE GLYCOLS
     Dosage: USE AS DIRECTED
     Dates: start: 20210903
  11. MIRTAZAPINE [Concomitant]
     Active Substance: MIRTAZAPINE
     Dosage: 1 DOSAGE FORMS DAILY; NIGHTLY.
     Dates: start: 20210412
  12. PANTOPRAZOLE [Concomitant]
     Active Substance: PANTOPRAZOLE
     Dosage: 2 DOSAGE FORMS DAILY;
     Dates: start: 20210412
  13. TESTOSTERONE [Concomitant]
     Active Substance: TESTOSTERONE
     Dosage: USE AS DIRECTED
     Dates: start: 20210412
  14. GABAPENTIN [Concomitant]
     Active Substance: GABAPENTIN
     Dosage: 3 DOSAGE FORMS DAILY;
     Dates: start: 20211013, end: 20211021

REACTIONS (3)
  - Suicidal ideation [Not Recovered/Not Resolved]
  - Nightmare [Unknown]
  - Wheezing [Unknown]

NARRATIVE: CASE EVENT DATE: 20211021
